FAERS Safety Report 7067402-9 (Version None)
Quarter: 2010Q4

REPORT INFORMATION
  Report Type: 
  Country: None (occurrence: None)
  Receive Date: 20101028
  Receipt Date: 20101019
  Transmission Date: 20110411
  Serious: Yes (Hospitalization)
  Sender: FDA-Public Use
  Company Number: US-SOLVAY-00210006316

PATIENT
  Age: 17789 Day
  Sex: Male
  Weight: 98.181 kg

DRUGS (7)
  1. ANDROGEL [Suspect]
     Indication: BLOOD TESTOSTERONE DECREASED
     Dosage: DAILY DOSE: 5 GRAM(S)
     Route: 062
     Dates: start: 20100401
  2. CRESTOR [Concomitant]
     Indication: BLOOD CHOLESTEROL INCREASED
     Dosage: DAILY DOSE: 40 MILLIGRAM(S)
     Route: 048
     Dates: start: 20070101
  3. LOVEZA [Concomitant]
     Indication: BLOOD CHOLESTEROL INCREASED
     Dosage: DAILY DOSE: 8 DOSAGE FORM
     Route: 048
     Dates: start: 20100401
  4. FOLIC ACID [Concomitant]
     Indication: PRODUCT USED FOR UNKNOWN INDICATION
     Dosage: DAILY DOSE: 1 GRAM(S)
     Route: 048
     Dates: start: 20100401
  5. LYRICA [Concomitant]
     Indication: NEURITIS
     Dosage: DAILY DOSE: 400 MILLIGRAM(S)
     Route: 048
     Dates: start: 20070101
  6. CIALIS [Concomitant]
     Indication: NERVE INJURY
     Dosage: DAILY DOSE: 5 MILLIGRAM(S)
     Route: 048
     Dates: start: 20100501
  7. OXYCODONE HCL [Concomitant]
     Indication: PAIN
     Dosage: DAILY DOSE:  UNKNOWN, AS USED: 15MG, FREQUENCY: AS NEEDED
     Route: 048
     Dates: start: 20090101

REACTIONS (2)
  - SKIN ULCER [None]
  - SPINAL DISORDER [None]
